FAERS Safety Report 22330121 (Version 1)
Quarter: 2023Q2

REPORT INFORMATION
  Report Type: Spontaneous
  Country: FR (occurrence: FR)
  Receive Date: 20230517
  Receipt Date: 20230517
  Transmission Date: 20230721
  Serious: Yes (Hospitalization)
  Sender: FDA-Public Use
  Company Number: None

PATIENT
  Age: 79 Year
  Sex: Female
  Weight: 80 kg

DRUGS (11)
  1. TRAMADOL HYDROCHLORIDE [Suspect]
     Active Substance: TRAMADOL HYDROCHLORIDE
     Indication: Eventration repair
     Dosage: UNK
     Route: 065
     Dates: start: 20230118
  2. NEFOPAM HYDROCHLORIDE [Suspect]
     Active Substance: NEFOPAM HYDROCHLORIDE
     Indication: Eventration repair
     Dosage: UNK
     Route: 065
     Dates: start: 20230118
  3. KETAMINE [Suspect]
     Active Substance: KETAMINE
     Indication: Eventration repair
     Dosage: UNK
     Route: 065
     Dates: start: 20230118
  4. DEXAMETHASONE [Suspect]
     Active Substance: DEXAMETHASONE
     Indication: Eventration repair
     Dosage: UNK
     Route: 065
     Dates: start: 20230118
  5. URAPIDIL HYDROCHLORIDE [Suspect]
     Active Substance: URAPIDIL HYDROCHLORIDE
     Indication: Eventration repair
     Dosage: UNK
     Route: 065
     Dates: start: 20230118
  6. SUFENTANIL [Suspect]
     Active Substance: SUFENTANIL
     Indication: Eventration repair
     Dosage: UNK
     Route: 065
     Dates: start: 20230118
  7. NOREPINEPHRINE [Suspect]
     Active Substance: NOREPINEPHRINE
     Indication: Eventration repair
     Dosage: UNK
     Route: 065
     Dates: start: 20230118
  8. MORPHINE [Suspect]
     Active Substance: MORPHINE
     Indication: Eventration repair
     Dosage: UNK
     Route: 065
     Dates: start: 20230118
  9. CEFAZOLIN [Suspect]
     Active Substance: CEFAZOLIN
     Indication: Eventration repair
     Dosage: UNK
     Route: 065
     Dates: start: 20230118
  10. PROPOFOL [Suspect]
     Active Substance: PROPOFOL
     Indication: Eventration repair
     Dosage: UNK
     Route: 065
     Dates: start: 20230118
  11. CISATRACURIUM [Suspect]
     Active Substance: CISATRACURIUM
     Indication: Eventration repair
     Dosage: UNK
     Route: 065
     Dates: start: 20230118

REACTIONS (1)
  - Acute generalised exanthematous pustulosis [Recovering/Resolving]

NARRATIVE: CASE EVENT DATE: 20230120
